FAERS Safety Report 15245136 (Version 1)
Quarter: 2018Q3

REPORT INFORMATION
  Report Type: Spontaneous
  Country: US (occurrence: US)
  Receive Date: 20180713
  Receipt Date: 20180713
  Transmission Date: 20181010
  Serious: Yes (Life-Threatening)
  Sender: FDA-Public Use
  Company Number: None

PATIENT
  Age: 51 Year
  Sex: Female
  Weight: 61.69 kg

DRUGS (1)
  1. ISOREL 250MG (SOY ISOFLAVONES) [Suspect]
     Active Substance: SOY ISOFLAVONES
     Indication: MENOPAUSAL SYMPTOMS
     Route: 048
     Dates: start: 20180214, end: 20180421

REACTIONS (2)
  - Hypoaesthesia [None]
  - Feeling abnormal [None]

NARRATIVE: CASE EVENT DATE: 20170821
